FAERS Safety Report 4269501-3 (Version None)
Quarter: 2004Q1

REPORT INFORMATION
  Report Type: 
  Country: None (occurrence: None)
  Receive Date: 20040112
  Receipt Date: 20031230
  Transmission Date: 20041129
  Serious: Yes (Hospitalization)
  Sender: FDA-Public Use
  Company Number: 200314986FR

PATIENT
  Age: 85 Year
  Sex: Female
  Weight: 49 kg

DRUGS (4)
  1. RIFAMPICIN (RIFADINE) [Suspect]
     Dates: start: 20030905, end: 20031002
  2. OMEPRAZOLE [Suspect]
     Dosage: 20 MG/DAY PO
     Route: 048
     Dates: start: 20030825, end: 20030905
  3. ZESTRIL [Suspect]
     Dosage: 5 MG DAY PO
     Route: 048
     Dates: start: 20030905, end: 20030914
  4. VANCOMYCIN HYDROCHLORIDE (VANCOCINE) [Suspect]
     Dosage: 5 MG DAY PO
     Route: 048
     Dates: start: 20030905, end: 20030913

REACTIONS (2)
  - HYPONATRAEMIA [None]
  - PNEUMONIA STAPHYLOCOCCAL [None]
